FAERS Safety Report 20212916 (Version 1)
Quarter: 2021Q4

REPORT INFORMATION
  Report Type: Spontaneous
  Country: PL (occurrence: PL)
  Receive Date: 20211221
  Receipt Date: 20211221
  Transmission Date: 20220303
  Serious: Yes (Life-Threatening, Hospitalization)
  Sender: FDA-Public Use
  Company Number: PL-BAYER-2020-010764

PATIENT
  Age: 74 Year
  Sex: Male

DRUGS (22)
  1. XARELTO [Interacting]
     Active Substance: RIVAROXABAN
     Indication: Atrial fibrillation
     Dosage: 20 MG, QD
     Route: 048
  2. CIPROFLOXACIN [Interacting]
     Active Substance: CIPROFLOXACIN
     Indication: Urinary tract infection
     Dosage: 500 MG, QD AT BED TIME
  3. AGOMELATINE [Interacting]
     Active Substance: AGOMELATINE
     Indication: Depression
     Dosage: 25 MG/DAY AT BEDTIME
  4. AGOMELATINE [Interacting]
     Active Substance: AGOMELATINE
     Indication: Anhedonia
  5. AMIODARONE [Interacting]
     Active Substance: AMIODARONE
     Indication: Atrial fibrillation
     Dosage: 200 MG, QD
  6. PROPRANOLOL [Interacting]
     Active Substance: PROPRANOLOL HYDROCHLORIDE
     Indication: Atrial fibrillation
     Dosage: 2 X 10 MG/DAY
  7. OMEPRAZOLE [Interacting]
     Active Substance: OMEPRAZOLE
     Dosage: 40 MG, QD
     Route: 048
  8. IBUPROFEN [Interacting]
     Active Substance: IBUPROFEN
     Indication: Headache
     Dosage: UNK
  9. IBUPROFEN [Interacting]
     Active Substance: IBUPROFEN
     Dosage: UNK
  10. KETOPROFEN [Suspect]
     Active Substance: KETOPROFEN
     Indication: Headache
     Dosage: UNK
  11. METAMIZOLE [Suspect]
     Active Substance: METAMIZOLE
     Indication: Headache
     Dosage: UNK
  12. METAMIZOLE [Suspect]
     Active Substance: METAMIZOLE
     Indication: Headache
     Dosage: UNK
  13. ACETAMINOPHEN [Suspect]
     Active Substance: ACETAMINOPHEN
     Indication: Headache
     Dosage: UNK
  14. ACETAMINOPHEN [Suspect]
     Active Substance: ACETAMINOPHEN
     Dosage: UNK
  15. POTASSIUM CHLORIDE [Suspect]
     Active Substance: POTASSIUM CHLORIDE
     Dosage: UNK
  16. POTASSIUM [Concomitant]
     Active Substance: POTASSIUM
     Dosage: UNK
  17. METOPROLOL [Concomitant]
     Active Substance: METOPROLOL
     Dosage: 100 MG, QD
  18. METOPROLOL [Concomitant]
     Active Substance: METOPROLOL
     Dosage: INITIALLY USED INTRAVENOUSLY - THEN ORALLY
  19. PANTOPRAZOLE [Concomitant]
     Active Substance: PANTOPRAZOLE
     Dosage: 40 MG, QD
  20. FLECAINIDE [Concomitant]
     Active Substance: FLECAINIDE
     Dosage: 2 X 100 MG/D
  21. VORTIOXETINE [Concomitant]
     Active Substance: VORTIOXETINE
     Dosage: 10 MG, QD
  22. TRAZODONE [Concomitant]
     Active Substance: TRAZODONE HYDROCHLORIDE
     Dosage: 25 MG, QD

REACTIONS (9)
  - Drug interaction [Recovered/Resolved]
  - Headache [Recovered/Resolved]
  - Abdominal pain upper [Recovered/Resolved]
  - Diarrhoea [Recovered/Resolved]
  - Asthenia [Recovered/Resolved]
  - Depression [Recovered/Resolved]
  - Tachycardia [Recovered/Resolved]
  - Hyperhidrosis [Recovered/Resolved]
  - Pain [Recovered/Resolved]

NARRATIVE: CASE EVENT DATE: 20190101
